FAERS Safety Report 20189931 (Version 6)
Quarter: 2022Q4

REPORT INFORMATION
  Report Type: Spontaneous
  Country: US (occurrence: US)
  Receive Date: 20211215
  Receipt Date: 20221130
  Transmission Date: 20230113
  Serious: Yes (Hospitalization, Other)
  Sender: FDA-Public Use
  Company Number: US-PFIZER INC-2021593083

PATIENT
  Age: 82 Year
  Sex: Female

DRUGS (1)
  1. INLYTA [Suspect]
     Active Substance: AXITINIB
     Indication: Renal cancer
     Dosage: 5 MG, 2X/DAY (BID)

REACTIONS (6)
  - Cholecystectomy [Unknown]
  - Back pain [Unknown]
  - Product dose omission issue [Unknown]
  - Hypoacusis [Unknown]
  - Malaise [Unknown]
  - Back disorder [Unknown]

NARRATIVE: CASE EVENT DATE: 20220101
